FAERS Safety Report 22350840 (Version 3)
Quarter: 2024Q4

REPORT INFORMATION
  Report Type: Spontaneous
  Country: US (occurrence: US)
  Receive Date: 20230522
  Receipt Date: 20241011
  Transmission Date: 20250114
  Serious: No
  Sender: PFIZER
  Company Number: US-PFIZER INC-PV202300088677

PATIENT
  Age: 76 Year
  Sex: Female

DRUGS (2)
  1. IBRANCE [Suspect]
     Active Substance: PALBOCICLIB
     Indication: Breast cancer
     Dosage: 125 MG
  2. IBRANCE [Suspect]
     Active Substance: PALBOCICLIB
     Indication: Metastases to bone
     Dosage: TAKE 1 TABLET BY MOUTH DAILY FOR 21 DAYS THEN REST FOR 7 DAYS
     Route: 048

REACTIONS (3)
  - Hypersensitivity [Unknown]
  - Feeling abnormal [Unknown]
  - Nasopharyngitis [Recovering/Resolving]
